FAERS Safety Report 5155772-8 (Version None)
Quarter: 2006Q4

REPORT INFORMATION
  Report Type: 
  Country: None (occurrence: None)
  Receive Date: 20061113
  Receipt Date: 20061101
  Transmission Date: 20070319
  Serious: Yes (Death)
  Sender: FDA-Public Use
  Company Number: HQWYE386003NOV06

PATIENT
  Age: 82 Year
  Sex: 0

DRUGS (3)
  1. CORDARONE [Suspect]
  2. DIGOXIN [Suspect]
  3. METOPROLOL TARTRATE [Suspect]

REACTIONS (1)
  - MEDICATION ERROR [None]
